FAERS Safety Report 19875146 (Version 1)
Quarter: 2021Q3

REPORT INFORMATION
  Report Type: Spontaneous
  Country: CN (occurrence: CN)
  Receive Date: 20210923
  Receipt Date: 20210923
  Transmission Date: 20211014
  Serious: Yes (Hospitalization, Other)
  Sender: FDA-Public Use
  Company Number: CN-BAYER-2021A215320

PATIENT
  Age: 46 Year
  Sex: Male
  Weight: 75.3 kg

DRUGS (3)
  1. TORIPALIMAB. [Suspect]
     Active Substance: TORIPALIMAB
     Dosage: UNK
     Dates: start: 202103
  2. STIVARGA [Suspect]
     Active Substance: REGORAFENIB
     Indication: SYMPTOMATIC TREATMENT
     Dosage: 80 MG, QD
     Route: 048
     Dates: start: 20210725, end: 20210801
  3. STIVARGA [Suspect]
     Active Substance: REGORAFENIB
     Indication: SYMPTOMATIC TREATMENT
     Dosage: 40 MG, QD
     Route: 048
     Dates: start: 20210802, end: 20210901

REACTIONS (5)
  - Off label use [None]
  - Myalgia [Recovering/Resolving]
  - Rhabdomyolysis [Recovering/Resolving]
  - Muscle swelling [Recovering/Resolving]
  - Asthenia [Recovering/Resolving]

NARRATIVE: CASE EVENT DATE: 20210725
